FAERS Safety Report 21667421 (Version 1)
Quarter: 2022Q4

REPORT INFORMATION
  Report Type: Spontaneous
  Country: CH (occurrence: CH)
  Receive Date: 20221201
  Receipt Date: 20221201
  Transmission Date: 20230112
  Serious: Yes (Life-Threatening, Hospitalization, Other)
  Sender: FDA-Public Use
  Company Number: CH-MYLANLABS-2022M1132876

PATIENT
  Age: 25 Year
  Sex: Male

DRUGS (7)
  1. CLOZAPINE [Suspect]
     Active Substance: CLOZAPINE
     Indication: Psychotic disorder
     Dosage: 400 MILLIGRAM (150MG IN THE MORNING, 250MG IN THE EVENING)
     Route: 065
  2. CLOZAPINE [Suspect]
     Active Substance: CLOZAPINE
     Indication: Schizoaffective disorder
     Dosage: 500 MILLIGRAM (200MG IN THE MORNING, 300MG IN THE EVENING)
     Route: 065
  3. CLOZAPINE [Suspect]
     Active Substance: CLOZAPINE
     Indication: Anxiety
  4. CLOZAPINE [Suspect]
     Active Substance: CLOZAPINE
     Indication: Suicidal ideation
  5. LAMOTRIGINE [Suspect]
     Active Substance: LAMOTRIGINE
     Indication: Affective disorder
     Dosage: 5 MILLIGRAM, QD
     Route: 065
     Dates: start: 202208
  6. SERTRALINE [Suspect]
     Active Substance: SERTRALINE HYDROCHLORIDE
     Indication: Product used for unknown indication
     Dosage: UNK
     Route: 065
  7. LITHIUM SULFATE [Suspect]
     Active Substance: LITHIUM SULFATE
     Indication: Product used for unknown indication
     Dosage: 12 MILLIGRAM ( 2X IN THE MORNING, 1.5X IN THE EVENING)
     Route: 065

REACTIONS (2)
  - Pneumonia [Unknown]
  - Off label use [Unknown]
